FAERS Safety Report 12895647 (Version 1)
Quarter: 2016Q4

REPORT INFORMATION
  Report Type: Spontaneous
  Country: IT (occurrence: IT)
  Receive Date: 20161031
  Receipt Date: 20161031
  Transmission Date: 20170207
  Serious: Yes (Life-Threatening, Hospitalization, Other)
  Sender: FDA-Public Use
  Company Number: PHHY2016IT148477

PATIENT

DRUGS (3)
  1. IMMUNOGLOBULIN G HUMAN [Suspect]
     Active Substance: HUMAN IMMUNOGLOBULIN G
     Indication: HEART BLOCK CONGENITAL
     Dosage: MATERNAL DOSE IS 1G/KG
     Route: 064
  2. BETAMETHASONE. [Suspect]
     Active Substance: BETAMETHASONE
     Indication: HEART BLOCK CONGENITAL
     Dosage: MATERNAL DOSE IS 4 MG, QD
     Route: 064
  3. ACETYLSALICYLIC ACID [Suspect]
     Active Substance: ASPIRIN
     Indication: FOETAL EXPOSURE DURING PREGNANCY
     Dosage: MATERNAL DOSE IS 100 MG QD
     Route: 064

REACTIONS (3)
  - Respiratory distress [Unknown]
  - Foetal exposure during pregnancy [Unknown]
  - Premature baby [Unknown]
